FAERS Safety Report 14073214 (Version 1)
Quarter: 2017Q4

REPORT INFORMATION
  Report Type: Spontaneous
  Country: US (occurrence: US)
  Receive Date: 20171010
  Receipt Date: 20171010
  Transmission Date: 20180321
  Serious: No
  Sender: FDA-Public Use
  Company Number: US-JNJFOC-20170714300

PATIENT
  Sex: Male

DRUGS (1)
  1. TYLENOL EXTRA STRENGTH [Suspect]
     Active Substance: ACETAMINOPHEN
     Indication: REPETITIVE STRAIN INJURY
     Route: 048
     Dates: start: 19960101, end: 20010101

REACTIONS (4)
  - Drug hypersensitivity [Unknown]
  - Drug administration error [Recovered/Resolved]
  - Product use in unapproved indication [Recovered/Resolved]
  - Folliculitis [Recovered/Resolved]
